FAERS Safety Report 8193404-5 (Version None)
Quarter: 2012Q1

REPORT INFORMATION
  Report Type: 
  Country: None (occurrence: None)
  Receive Date: 20120308
  Receipt Date: 20120305
  Transmission Date: 20120608
  Serious: Yes (Death, Other)
  Sender: FDA-Public Use
  Company Number: CO-PFIZER INC-2012059493

PATIENT
  Sex: Female

DRUGS (6)
  1. ASPIRIN [Concomitant]
     Dosage: 100 MG, 1X/DAY
     Route: 048
  2. LIPITOR [Suspect]
     Indication: DYSLIPIDAEMIA
     Dosage: 10 MG, 1X/DAY
     Route: 048
     Dates: start: 20081003
  3. NORVASC [Suspect]
     Indication: HYPERTENSION
     Dosage: 5 MG, 1X/DAY
     Route: 048
     Dates: start: 20071203
  4. OLMESARTAN MEDOXOMIL AND HYDROCHLOROTHIZIDE [Suspect]
     Indication: HYPERTENSION
     Dosage: [OLMESARTAN MEDOXOMIL 20]/[HYDROCHLOROTHIAZIDE 12.5 MG] ,ONCE A DAY
     Route: 048
     Dates: start: 20071203
  5. GLIBENCLAMIDE [Concomitant]
     Dosage: 5 MG, 1X/DAY
     Route: 048
  6. HYDROCHLOROTHIAZIDE [Concomitant]
     Dosage: 25 MG, 1X/DAY
     Route: 048

REACTIONS (1)
  - DEATH [None]
